FAERS Safety Report 5541771-0 (Version None)
Quarter: 2007Q4

REPORT INFORMATION
  Report Type: 
  Country: None (occurrence: None)
  Receive Date: 20071210
  Receipt Date: 20071129
  Transmission Date: 20080405
  Serious: Yes (Other)
  Sender: FDA-Public Use
  Company Number: A0697996A

PATIENT
  Age: 32 Year
  Sex: Female

DRUGS (6)
  1. WELLBUTRIN [Suspect]
     Indication: DEPRESSION
     Route: 048
  2. LEXAPRO [Suspect]
     Indication: DEPRESSION
     Dosage: 10MG PER DAY
     Dates: end: 20070322
  3. TYLENOL [Concomitant]
  4. PRENATAL VITAMINS [Concomitant]
  5. VICODIN [Concomitant]
  6. PYRIDIUM [Concomitant]

REACTIONS (4)
  - DRUG EXPOSURE DURING PREGNANCY [None]
  - LIVE BIRTH [None]
  - NEPHROLITHIASIS [None]
  - URINARY TRACT INFECTION [None]
